FAERS Safety Report 24416784 (Version 4)
Quarter: 2024Q4

REPORT INFORMATION
  Report Type: Spontaneous
  Country: JP (occurrence: JP)
  Receive Date: 20241009
  Receipt Date: 20241128
  Transmission Date: 20250115
  Serious: Yes (Death, Hospitalization, Other)
  Sender: ARGENX BVBA
  Company Number: JP-ARGENX-2024-ARGX-JP008660AA

PATIENT

DRUGS (15)
  1. EFGARTIGIMOD ALFA\HYALURONIDASE-QVFC [Suspect]
     Active Substance: EFGARTIGIMOD ALFA\HYALURONIDASE-QVFC
     Indication: Myasthenia gravis
     Dosage: 5.6 ML
     Route: 058
     Dates: start: 20240925, end: 20241002
  2. PREDONINE [Concomitant]
     Active Substance: PREDNISOLONE
     Indication: Product used for unknown indication
     Dosage: 5 TABLETS, AFTER BREAKFAST
     Route: 048
     Dates: start: 20240416
  3. TACROLIMUS [Concomitant]
     Active Substance: TACROLIMUS
     Indication: Product used for unknown indication
     Dosage: 3 TABLETS, AFTER DINNER
     Route: 048
     Dates: start: 20240704
  4. MESTINON [Concomitant]
     Active Substance: PYRIDOSTIGMINE BROMIDE
     Indication: Product used for unknown indication
     Dosage: 60 MILLIGRAMS, 3 TIMES DAILY, AFTER EACH MEAL
     Route: 048
  5. SULFAMETHOXAZOLE\TRIMETHOPRIM [Concomitant]
     Active Substance: SULFAMETHOXAZOLE\TRIMETHOPRIM
     Indication: Product used for unknown indication
     Dosage: 0.5 TABLET, AFTER BREAKFAST
     Route: 048
  6. RABEPRAZOLE SODIUM [Concomitant]
     Active Substance: RABEPRAZOLE SODIUM
     Indication: Product used for unknown indication
     Dosage: 1 TABLET, AFTER BREAKFAST
     Route: 048
  7. DAPAGLIFLOZIN [Concomitant]
     Active Substance: DAPAGLIFLOZIN
     Indication: Product used for unknown indication
     Dosage: 1 TABLET, AFTER BREAKFAST
     Route: 048
  8. EZETIMIBE [Concomitant]
     Active Substance: EZETIMIBE
     Indication: Product used for unknown indication
     Dosage: 1 TABLET, AFTER BREAKFAST
     Route: 048
  9. FUROSEMIDE [Concomitant]
     Active Substance: FUROSEMIDE
     Indication: Product used for unknown indication
     Dosage: 1 TABLET, AFTER BREAKFAST
     Route: 048
  10. ROZEREM [Concomitant]
     Active Substance: RAMELTEON
     Indication: Product used for unknown indication
     Dosage: 1 TABLET, AFTER DINNER
     Route: 048
  11. DAYVIGO [Concomitant]
     Active Substance: LEMBOREXANT
     Indication: Product used for unknown indication
     Dosage: 2 TABLETS, BEFORE BED
     Route: 048
  12. FEBUXOSTAT [Concomitant]
     Active Substance: FEBUXOSTAT
     Indication: Product used for unknown indication
     Dosage: 1 TABLET, AFTER DINNER
     Route: 048
  13. ACTONEL [Concomitant]
     Active Substance: RISEDRONATE SODIUM
     Indication: Product used for unknown indication
     Dosage: WAKING UP, 1 TIME/WEEK
     Route: 048
  14. CARBOCYSTEINE [Concomitant]
     Active Substance: CARBOCYSTEINE
     Indication: Product used for unknown indication
     Dosage: 1 TABLET, 3 TIMES A DAY, AFTER EACH MEAL
     Route: 048
  15. DEXTROMETHORPHAN HYDROBROMIDE [Concomitant]
     Active Substance: DEXTROMETHORPHAN HYDROBROMIDE
     Indication: Product used for unknown indication
     Dosage: 2 TABLETS, MORNING AND EVENING AFTER MEALS
     Route: 048

REACTIONS (7)
  - Respiratory failure [Fatal]
  - Diarrhoea [Fatal]
  - Acute kidney injury [Fatal]
  - Decreased appetite [Fatal]
  - Dyspnoea [Fatal]
  - Sputum retention [Fatal]
  - Urine output decreased [Fatal]

NARRATIVE: CASE EVENT DATE: 20240926
